FAERS Safety Report 24897092 (Version 1)
Quarter: 2025Q1

REPORT INFORMATION
  Report Type: Spontaneous
  Country: GB (occurrence: GB)
  Receive Date: 20250128
  Receipt Date: 20250128
  Transmission Date: 20250409
  Serious: No
  Sender: ALKEM
  Company Number: None

PATIENT
  Age: 55 Year
  Sex: Female
  Weight: 92 kg

DRUGS (26)
  1. CEPHALEXIN [Suspect]
     Active Substance: CEPHALEXIN
     Indication: Product used for unknown indication
     Dosage: 2 DOSAGE FORM, QD, TAKE ONE CAPSULE TWICE A DAY FOR 10 DAYS
     Route: 065
     Dates: start: 20240418
  2. CALCIUM CARBONATE\CHOLECALCIFEROL [Concomitant]
     Active Substance: CALCIUM CARBONATE\CHOLECALCIFEROL
     Indication: Ill-defined disorder
     Dosage: 1 DOSAGE FORM, QD (TAKE ONE CHEWABLE TABLET ONCE A DAY)
     Route: 065
     Dates: start: 20240307
  3. AMITRIPTYLINE HYDROCHLORIDE [Concomitant]
     Active Substance: AMITRIPTYLINE HYDROCHLORIDE
     Indication: Ill-defined disorder
     Route: 065
     Dates: start: 20230411
  4. AMLODIPINE [Concomitant]
     Active Substance: AMLODIPINE BESYLATE
     Indication: Ill-defined disorder
     Dosage: UNK, TAKE ONE DAILY ** ANNUAL BP+PULSE**
     Route: 065
     Dates: start: 20230411
  5. ATORVASTATIN [Concomitant]
     Active Substance: ATORVASTATIN
     Indication: Ill-defined disorder
     Dosage: UNK, QD, TAKE ONE DAILY
     Route: 065
     Dates: start: 20230411
  6. BENDROFLUMETHIAZIDE [Concomitant]
     Active Substance: BENDROFLUMETHIAZIDE
     Indication: Ill-defined disorder
     Dosage: UNK, TAKE ONE DAILY **ANNUAL BLOODS AND BP**
     Route: 065
     Dates: start: 20230411
  7. BISACODYL [Concomitant]
     Active Substance: BISACODYL
     Indication: Ill-defined disorder
     Route: 065
     Dates: start: 20230411
  8. CALCIUM\CHOLECALCIFEROL [Concomitant]
     Active Substance: CALCIUM\CHOLECALCIFEROL
     Indication: Ill-defined disorder
     Dosage: UNK, BID, TAKE ONE TWICE DAILY
     Route: 065
     Dates: start: 20230411, end: 20240226
  9. CIPROFLOXACIN [Concomitant]
     Active Substance: CIPROFLOXACIN
     Indication: Ill-defined disorder
     Dosage: 1 DOSAGE FORM, BID
     Route: 065
     Dates: start: 20240325, end: 20240401
  10. CLOTRIMAZOLE [Concomitant]
     Active Substance: CLOTRIMAZOLE
     Indication: Ill-defined disorder
     Route: 065
     Dates: start: 20240415, end: 20240416
  11. BECLOMETHASONE\FORMOTEROL [Concomitant]
     Active Substance: BECLOMETHASONE\FORMOTEROL
     Indication: Ill-defined disorder
     Dosage: 2 DOSAGE FORM, BID (MAXIMUM 4 DOSES P...)
     Dates: start: 20230411
  12. Hydromol Emollient [Concomitant]
     Indication: Ill-defined disorder
     Route: 065
     Dates: start: 20230411
  13. BUTYLSCOPOLAMINE BROMIDE [Concomitant]
     Active Substance: BUTYLSCOPOLAMINE BROMIDE
     Indication: Ill-defined disorder
     Route: 065
     Dates: start: 20240403
  14. LACTULOSE [Concomitant]
     Active Substance: LACTULOSE
     Indication: Ill-defined disorder
     Dosage: UNK, TAKE 10- 15ML TWICE DAILY FOR CONSTIPATION
     Route: 065
     Dates: start: 20230411
  15. Macrogol Compound [Concomitant]
     Indication: Ill-defined disorder
     Dosage: UNK, TAKE ONE TO TWO SACHETS DAILY
     Route: 065
     Dates: start: 20240325, end: 20240424
  16. MONTELUKAST [Concomitant]
     Active Substance: MONTELUKAST
     Indication: Ill-defined disorder
     Route: 065
     Dates: start: 20230411
  17. NAPROXEN [Concomitant]
     Active Substance: NAPROXEN
     Indication: Ill-defined disorder
     Dosage: UNK, TAKE ONE TWICE DAILY WITH MEALS **ANNUAL BLOODS...
     Route: 065
     Dates: start: 20230411, end: 20240415
  18. OMEPRAZOLE [Concomitant]
     Active Substance: OMEPRAZOLE
     Indication: Ill-defined disorder
     Dosage: 1 DOSAGE FORM, QD (TAKE ONE CAPSULE ONCE A DAY)
     Route: 065
     Dates: start: 20230411
  19. ACETAMINOPHEN [Concomitant]
     Active Substance: ACETAMINOPHEN
     Indication: Ill-defined disorder
     Route: 065
     Dates: start: 20230411
  20. RAMIPRIL [Concomitant]
     Active Substance: RAMIPRIL
     Indication: Ill-defined disorder
     Dosage: UNK, TAKE ONE DAILY **ANNUAL BLOODS AND BP**
     Route: 065
     Dates: start: 20230411
  21. ALBUTEROL [Concomitant]
     Active Substance: ALBUTEROL
     Indication: Ill-defined disorder
     Dates: start: 20230926
  22. SERTRALINE [Concomitant]
     Active Substance: SERTRALINE HYDROCHLORIDE
     Indication: Ill-defined disorder
     Dosage: 1 DOSAGE FORM, QD
     Route: 065
     Dates: start: 20230411
  23. SITAGLIPTIN [Concomitant]
     Active Substance: SITAGLIPTIN
     Indication: Ill-defined disorder
     Dosage: 1 DOSAGE FORM, QD (**ANNUAL DIABETIC BL...)
     Route: 065
     Dates: start: 20230411
  24. SPIRONOLACTONE [Concomitant]
     Active Substance: SPIRONOLACTONE
     Indication: Ill-defined disorder
     Dosage: UNK, QD, TAKE ONE DAILY **6M BLOODS AND BP**
     Route: 065
     Dates: start: 20230411
  25. TIOTROPIUM [Concomitant]
     Active Substance: TIOTROPIUM
     Indication: Ill-defined disorder
     Dates: start: 20230411
  26. TRIMETHOPRIM [Concomitant]
     Active Substance: TRIMETHOPRIM
     Indication: Ill-defined disorder
     Dosage: UNK, BID, TAKE ONE TWICE DAILY FOR 7 DAYS FOR SUSPECTED URINARY INFECTION
     Route: 065
     Dates: start: 20240403, end: 20240410

REACTIONS (1)
  - Diarrhoea [Not Recovered/Not Resolved]
